FAERS Safety Report 7871032-6 (Version None)
Quarter: 2011Q4

REPORT INFORMATION
  Report Type: 
  Country: None (occurrence: None)
  Receive Date: 20111029
  Receipt Date: 20110223
  Transmission Date: 20120403
  Serious: No
  Sender: FDA-Public Use
  Company Number: US-AMGEN-USASP2011010382

PATIENT
  Age: 81 Year
  Sex: Female
  Weight: 45.351 kg

DRUGS (9)
  1. ENBREL [Suspect]
     Indication: PRODUCT USED FOR UNKNOWN INDICATION
     Dosage: 25 MG, 2 TIMES/WK
  2. METHOTREXATE [Concomitant]
     Dosage: 2.5 MG, UNK
  3. PLAVIX [Concomitant]
     Dosage: 75 MG, UNK
  4. FOLIC ACID [Concomitant]
     Dosage: 1 MG, UNK
  5. LEVOTHYROXINE SODIUM [Concomitant]
     Dosage: 0.25 MG, UNK
  6. ACTOS [Concomitant]
     Dosage: 30 MG, UNK
  7. DIGOXIN [Concomitant]
     Dosage: 0.125 MG, UNK
  8. PREDNISONE [Concomitant]
     Dosage: 5 MG, UNK
  9. ALTACE [Concomitant]
     Dosage: 2.5 MG, UNK

REACTIONS (1)
  - PHOTOPSIA [None]
